FAERS Safety Report 4874829-X (Version None)
Quarter: 2006Q1

REPORT INFORMATION
  Report Type: 
  Country: None (occurrence: None)
  Receive Date: 20060104
  Receipt Date: 20051227
  Transmission Date: 20060701
  Serious: Yes (Other)
  Sender: FDA-Public Use
  Company Number: 2005162182

PATIENT
  Age: 64 Year
  Sex: Female

DRUGS (2)
  1. CARDENALIN (DOXAZOSIN) [Suspect]
     Indication: HYPERTENSION
     Dosage: 2 MG, ORAL
     Route: 048
     Dates: start: 20051104, end: 20051124
  2. BLOPRESS (CANDESARTAN CILEXETIL) [Concomitant]

REACTIONS (1)
  - ATRIAL FIBRILLATION [None]
